FAERS Safety Report 22115974 (Version 2)
Quarter: 2023Q2

REPORT INFORMATION
  Report Type: Spontaneous
  Country: US (occurrence: US)
  Receive Date: 20230320
  Receipt Date: 20230512
  Transmission Date: 20230721
  Serious: No
  Sender: FDA-Public Use
  Company Number: US-PFIZER INC-PV202300051181

PATIENT
  Age: 69 Year
  Sex: Male

DRUGS (2)
  1. INLYTA [Suspect]
     Active Substance: AXITINIB
     Dosage: UNK
  2. TORSEMIDE [Suspect]
     Active Substance: TORSEMIDE
     Dosage: UNK

REACTIONS (5)
  - Cardiac disorder [Not Recovered/Not Resolved]
  - Diarrhoea [Recovered/Resolved]
  - Blood urine present [Recovered/Resolved]
  - Polyuria [Recovered/Resolved]
  - Product dose omission issue [Unknown]
